FAERS Safety Report 7026256-7 (Version None)
Quarter: 2010Q4

REPORT INFORMATION
  Report Type: 
  Country: None (occurrence: None)
  Receive Date: 20101004
  Receipt Date: 20100923
  Transmission Date: 20110411
  Serious: Yes (Other)
  Sender: FDA-Public Use
  Company Number: US-BAXTER-2010BH021505

PATIENT
  Age: 26 Year
  Sex: Male

DRUGS (13)
  1. GAMMAGARD LIQUID [Suspect]
     Indication: IMMUNODEFICIENCY COMMON VARIABLE
     Route: 065
  2. GAMMAGARD LIQUID [Suspect]
     Indication: PRIMARY IMMUNODEFICIENCY SYNDROME
     Route: 065
  3. PROBIOTICA [Concomitant]
     Route: 048
  4. TYLENOL [Concomitant]
     Route: 048
  5. AMBIEN [Concomitant]
     Route: 048
  6. THYROID TAB [Concomitant]
     Route: 048
  7. PANCREATIN [Concomitant]
  8. PANTOPRAZOLE [Concomitant]
     Route: 048
  9. ULTRAM [Concomitant]
     Indication: PAIN
     Route: 048
  10. FISH OIL [Concomitant]
  11. MULTI-VITAMINS [Concomitant]
  12. VITAMIN B-12 [Concomitant]
  13. MELATONIN [Concomitant]

REACTIONS (5)
  - CHILLS [None]
  - MUSCLE SPASMS [None]
  - PALLOR [None]
  - SEPSIS [None]
  - SINUSITIS [None]
